FAERS Safety Report 18268130 (Version 1)
Quarter: 2020Q3

REPORT INFORMATION
  Report Type: Spontaneous
  Country: US (occurrence: US)
  Receive Date: 20200915
  Receipt Date: 20200915
  Transmission Date: 20201103
  Serious: Yes (Other)
  Sender: FDA-Public Use
  Company Number: US-PFIZER INC-2020350027

PATIENT

DRUGS (1)
  1. TRANEXAMIC ACID. [Suspect]
     Active Substance: TRANEXAMIC ACID
     Indication: SPINAL ANAESTHESIA
     Dosage: UNK
     Route: 037

REACTIONS (6)
  - Seizure [Unknown]
  - Incorrect route of product administration [Unknown]
  - Product packaging confusion [Unknown]
  - Arachnoiditis [Unknown]
  - Pain [Unknown]
  - Wrong product administered [Unknown]
